FAERS Safety Report 6674451-9 (Version None)
Quarter: 2010Q2

REPORT INFORMATION
  Report Type: 
  Country: None (occurrence: None)
  Receive Date: 20100409
  Receipt Date: 20100401
  Transmission Date: 20101027
  Serious: Yes (Hospitalization)
  Sender: FDA-Public Use
  Company Number: PHHO2009JP15308

PATIENT
  Sex: Male
  Weight: 70.4 kg

DRUGS (15)
  1. CERTICAN [Suspect]
     Indication: RENAL TRANSPLANT
     Dosage: 0.5 MG, QD
     Route: 048
     Dates: start: 20090619, end: 20090601
  2. CERTICAN [Suspect]
     Dosage: 0.5 MG, QD
     Route: 048
     Dates: start: 20090601
  3. CERTICAN [Suspect]
     Dosage: 1 MG DAILY
     Dates: start: 20091202
  4. NEORAL [Suspect]
     Indication: RENAL TRANSPLANT
     Dosage: 400 MG, QD
     Route: 048
     Dates: start: 20090616, end: 20090601
  5. NEORAL [Suspect]
     Dosage: 400 MG, QD
     Route: 048
     Dates: start: 20090601
  6. NEORAL [Suspect]
     Dosage: 100 MG DAILY
     Dates: start: 20091202
  7. SIMULECT [Suspect]
     Indication: RENAL TRANSPLANT
     Dosage: 20 MG, ONCE/SINGLE
     Route: 042
     Dates: start: 20090601, end: 20090601
  8. SIMULECT [Suspect]
     Dosage: 20 MG, ONCE/SINGLE
     Route: 042
     Dates: start: 20090622, end: 20090622
  9. LIPITOR [Suspect]
     Indication: HYPERLIPIDAEMIA
     Dosage: 10 MG, QD
     Route: 048
     Dates: start: 20090614, end: 20090620
  10. TAKEPRON [Suspect]
     Indication: PROPHYLAXIS AGAINST GASTROINTESTINAL ULCER
     Dosage: 15 MG, QD
     Route: 048
     Dates: start: 20090614
  11. MEDROL [Suspect]
     Indication: RENAL TRANSPLANT
     Dosage: 20 MG, QD
     Route: 048
     Dates: start: 19600927
  12. MEDROL [Suspect]
     Dosage: 4 MG DAILY
     Dates: start: 20091202
  13. PLETAL [Suspect]
     Indication: THROMBOSIS PROPHYLAXIS
     Dosage: 200 MG, QD
     Route: 048
     Dates: start: 20090620
  14. FLUMARIN [Suspect]
     Dosage: 1 G, QD
     Route: 023
     Dates: start: 20090616, end: 20090621
  15. ALPROSTADIL [Suspect]
     Indication: THROMBOSIS PROPHYLAXIS
     Dosage: 20 UG, QD
     Route: 023
     Dates: start: 20090619, end: 20090626

REACTIONS (7)
  - DYSPNOEA [None]
  - INCISIONAL HERNIA [None]
  - INCISIONAL HERNIA REPAIR [None]
  - MALAISE [None]
  - PULMONARY INFARCTION [None]
  - VENA CAVA FILTER INSERTION [None]
  - VENOUS THROMBOSIS [None]
